FAERS Safety Report 9841872 (Version 2)
Quarter: 2014Q1

REPORT INFORMATION
  Report Type: Spontaneous
  Country: US (occurrence: US)
  Receive Date: 20140124
  Receipt Date: 20140206
  Transmission Date: 20141002
  Serious: Yes (Other)
  Sender: FDA-Public Use
  Company Number: US-JHP PHARMACEUTICALS, LLC-JHP201400011

PATIENT
  Sex: Female

DRUGS (1)
  1. PITOCIN [Suspect]
     Indication: POSTPARTUM HAEMORRHAGE
     Dosage: 20 IU, SINGLE
     Route: 030
     Dates: start: 20140112, end: 20140112

REACTIONS (2)
  - Hypotension [Recovered/Resolved]
  - Incorrect dose administered [Recovered/Resolved]
